FAERS Safety Report 18351626 (Version 1)
Quarter: 2020Q4

REPORT INFORMATION
  Report Type: Spontaneous
  Country: US (occurrence: US)
  Receive Date: 20201006
  Receipt Date: 20201006
  Transmission Date: 20210114
  Serious: Yes (Hospitalization, Other)
  Sender: FDA-Public Use
  Company Number: US-AMNEAL PHARMACEUTICALS-2020-AMRX-02256

PATIENT
  Sex: Female
  Weight: 8 kg

DRUGS (3)
  1. VIGABATRIN. [Suspect]
     Active Substance: VIGABATRIN
     Indication: INFANTILE SPASMS
     Dosage: 225 MILLIGRAM, 2 /DAY (1 PACKET IN 10 ML OF WATER AND GIVE/TAKE 4.5 ML)
     Route: 048
  2. VIGABATRIN. [Suspect]
     Active Substance: VIGABATRIN
     Dosage: 675 MILLIGRAM, 2 /DAY (DISSOLVE 2 PACKETS IN 20 ML OF WATER AND GIVE/TAKE 13.5 ML)
     Route: 048
  3. VIGABATRIN. [Suspect]
     Active Substance: VIGABATRIN
     Dosage: 450 MILLIGRAM, 2 /DAY (1 PACKET IN 10 ML OF WATER AND GIVE/TAKE 9 ML)
     Route: 048

REACTIONS (2)
  - Seizure [Unknown]
  - Product dose omission issue [Unknown]
